FAERS Safety Report 21648052 (Version 5)
Quarter: 2024Q3

REPORT INFORMATION
  Report Type: Report from Study
  Country: MX (occurrence: MX)
  Receive Date: 20221128
  Receipt Date: 20240923
  Transmission Date: 20241017
  Serious: No
  Sender: ROCHE
  Company Number: MX-ROCHE-3225321

PATIENT
  Age: 66 Year
  Sex: Female

DRUGS (7)
  1. TRASTUZUMAB [Suspect]
     Active Substance: TRASTUZUMAB
     Indication: Breast cancer
     Dosage: STARTED ON 30/SEP/2021
     Route: 041
     Dates: start: 20210930, end: 20220214
  2. TRASTUZUMAB [Suspect]
     Active Substance: TRASTUZUMAB
     Dosage: STARTED ON 07/MAR/2022, NUMBER OF CYCLES PER REGIMEN: 3, REASON FOR DISCONTINUATION WAS DISEASE RECU
     Route: 042
     Dates: start: 20220307, end: 20220729
  3. ADO-TRASTUZUMAB EMTANSINE [Suspect]
     Active Substance: ADO-TRASTUZUMAB EMTANSINE
     Indication: Breast cancer
     Dosage: DATE OF MOST RECENT DOSE OF DRUG PRIOR TO AE ONSET WAS 20/JUN/2022
     Route: 042
     Dates: start: 20220620, end: 20220620
  4. ATEZOLIZUMAB [Suspect]
     Active Substance: ATEZOLIZUMAB
     Indication: Breast cancer
     Dosage: DATE OF MOST RECENT DOSE OF DRUG PRIOR TO AE ONSET 20/JUN/2022, REASON FOR DISCONTINUATION WAS TREAT
     Route: 041
     Dates: start: 20220620, end: 20220620
  5. BEVACIZUMAB [Suspect]
     Active Substance: BEVACIZUMAB
     Indication: Breast cancer
     Route: 042
  6. PERTUZUMAB [Suspect]
     Active Substance: PERTUZUMAB
     Indication: Breast cancer
     Route: 042
     Dates: start: 20220620, end: 20220620
  7. CAPECITABINE [Suspect]
     Active Substance: CAPECITABINE
     Indication: Breast cancer
     Route: 042

REACTIONS (3)
  - Neutropenia [Recovered/Resolved]
  - Nausea [Recovered/Resolved]
  - Diarrhoea [Recovered/Resolved]

NARRATIVE: CASE EVENT DATE: 20220621
